FAERS Safety Report 8856258 (Version 1)
Quarter: 2012Q4

REPORT INFORMATION
  Report Type: Spontaneous
  Country: US (occurrence: None)
  Receive Date: 20121023
  Receipt Date: 20121023
  Transmission Date: 20130627
  Serious: Yes (Hospitalization)
  Sender: FDA-Public Use
  Company Number: None

PATIENT
  Age: 50 Year
  Weight: 77.11 kg

DRUGS (1)
  1. PERCOCET [Suspect]
     Dosage: as needed

REACTIONS (1)
  - Product packaging quantity issue [None]
